FAERS Safety Report 10958735 (Version 1)
Quarter: 2015Q1

REPORT INFORMATION
  Report Type: Spontaneous
  Country: US (occurrence: US)
  Receive Date: 20150326
  Receipt Date: 20150326
  Transmission Date: 20150721
  Serious: Yes (Death, Hospitalization)
  Sender: FDA-Public Use
  Company Number: US-BAYER-2015-011744

PATIENT
  Age: 34 Year
  Sex: Female

DRUGS (43)
  1. DOLANTIN [Suspect]
     Active Substance: MEPERIDINE
     Dosage: 25 MG, UNK
     Route: 041
     Dates: start: 19960816, end: 19960816
  2. DORMICUM [Suspect]
     Active Substance: MIDAZOLAM\MIDAZOLAM HYDROCHLORIDE
     Dosage: UNK
     Route: 041
     Dates: start: 19960818
  3. GENTAMICIN. [Suspect]
     Active Substance: GENTAMICIN
     Dosage: 360 MG, UNK
     Route: 041
     Dates: start: 19960805, end: 19960811
  4. ISOPTIN [Suspect]
     Active Substance: VERAPAMIL HYDROCHLORIDE
     Dosage: 50 MG, UNK
     Route: 041
     Dates: start: 19960817, end: 19960817
  5. VANCOMYCIN [Suspect]
     Active Substance: VANCOMYCIN
     Dosage: UNK
     Route: 041
     Dates: start: 19960811
  6. VITALIPID [Suspect]
     Active Substance: ERGOCALCIFEROL\PHYTONADIONE\RETINOL\TOCOPHEROL
     Dosage: UNK
     Route: 041
     Dates: start: 19960809, end: 19960816
  7. DIFLUCAN [Suspect]
     Active Substance: FLUCONAZOLE
     Dosage: 400 MG, UNK
     Route: 048
     Dates: start: 19960730, end: 19960816
  8. CLAFORAN [Suspect]
     Active Substance: CEFOTAXIME SODIUM
     Dosage: UNK
     Route: 041
     Dates: start: 19960805, end: 19960809
  9. IMODIUM [Suspect]
     Active Substance: LOPERAMIDE HYDROCHLORIDE
     Dosage: UNK
     Route: 048
     Dates: start: 19960731, end: 19960816
  10. LASIX [Suspect]
     Active Substance: FUROSEMIDE
     Dosage: 20 MG, UNK
     Route: 048
     Dates: start: 19960814, end: 19960814
  11. OPIUM [Suspect]
     Active Substance: OPIUM
     Dosage: UNK
     Route: 048
     Dates: start: 19960807, end: 19960818
  12. ACETAMINOPHEN. [Suspect]
     Active Substance: ACETAMINOPHEN
     Dosage: UNK
     Route: 048
     Dates: start: 19960805, end: 19960811
  13. PRIMAXIN [Suspect]
     Active Substance: CILASTATIN SODIUM\IMIPENEM
     Dosage: 0.5 G, UNK
     Route: 041
     Dates: start: 19960816, end: 19960816
  14. ANTRA [Suspect]
     Active Substance: OMEPRAZOLE
     Dosage: 20 MG, UNK
     Route: 041
     Dates: start: 19960730
  15. METHOTREXATE [Suspect]
     Active Substance: METHOTREXATE
     Dosage: UNK
     Route: 037
     Dates: start: 19960730
  16. AMOXICILLIN AND CLAVULANATE POTASSIUM [Suspect]
     Active Substance: AMOXICILLIN\CLAVULANATE POTASSIUM
     Dosage: UNK
     Route: 041
     Dates: start: 19960807, end: 19960811
  17. HUMANALBUMIN [Suspect]
     Active Substance: ALBUMIN (HUMAN)
     Dosage: UNK
     Route: 041
     Dates: start: 19960816, end: 19960817
  18. LIQUEMIN [Suspect]
     Active Substance: HEPARIN SODIUM
     Dosage: 7500 IU, UNK
     Route: 058
     Dates: start: 19960806
  19. MORPHINE SULFATE. [Suspect]
     Active Substance: MORPHINE SULFATE
     Dosage: UNK
     Route: 041
     Dates: start: 19960808, end: 19960816
  20. PSYQUIL [Suspect]
     Active Substance: TRIFLUPROMAZINE HYDROCHLORIDE
     Dosage: UNK
     Route: 041
     Dates: start: 19960816
  21. SOBELIN [Suspect]
     Active Substance: CLINDAMYCIN HYDROCHLORIDE
     Dosage: UNK
     Route: 041
     Dates: start: 19960817, end: 19960817
  22. TAVEGIL [Suspect]
     Active Substance: CLEMASTINE FUMARATE
     Dosage: UNK
     Route: 041
     Dates: start: 19960816
  23. METHOTREXATE [Suspect]
     Active Substance: METHOTREXATE
     Dosage: UNK
     Route: 042
     Dates: start: 19960802
  24. LEUCOMAX [Suspect]
     Active Substance: MOLGRAMOSTIM
     Dosage: 300 ?G, UNK
     Route: 058
     Dates: start: 19960815
  25. NEUPOGEN [Suspect]
     Active Substance: FILGRASTIM
     Indication: NEUTROPENIA
     Dosage: UNK
     Dates: start: 19960816, end: 19960817
  26. ZIENAM [Suspect]
     Active Substance: CILASTATIN SODIUM\IMIPENEM
     Dosage: 0.5 MG, UNK
     Route: 041
     Dates: start: 19960816, end: 19960816
  27. BIFITERAL [Suspect]
     Active Substance: LACTULOSE
     Dosage: UNK
     Route: 048
     Dates: start: 19960813, end: 19960813
  28. AMPHOTERICIN B. [Suspect]
     Active Substance: AMPHOTERICIN B
     Dosage: 40 MG, UNK
     Route: 041
     Dates: start: 19960816
  29. SOLU-DECORTIN-H [Suspect]
     Active Substance: PREDNISOLONE HEMISUCCINATE
     Dosage: UNK
     Route: 041
     Dates: start: 19960817, end: 19960817
  30. DIPIDOLOR [Suspect]
     Active Substance: PIRITRAMIDE
     Dosage: 3.75 MG, UNK
     Route: 041
     Dates: start: 19960816
  31. DEMEROL [Suspect]
     Active Substance: MEPERIDINE HYDROCHLORIDE
  32. NOVALGIN [Suspect]
     Active Substance: METAMIZOLE SODIUM
     Dosage: UNK
     Route: 041
     Dates: start: 19960811, end: 19960819
  33. METHOTREXATE [Suspect]
     Active Substance: METHOTREXATE
     Dosage: UNK
     Route: 042
     Dates: start: 19960730
  34. ANCOTIL [Suspect]
     Active Substance: FLUCYTOSINE
     Dosage: UNK
     Route: 041
     Dates: start: 19960815
  35. DOPAMIN [Suspect]
     Active Substance: DOPAMINE HYDROCHLORIDE
     Dosage: 200 MG, UNK
     Route: 041
     Dates: start: 19960817
  36. ZOFRAN [Suspect]
     Active Substance: ONDANSETRON HYDROCHLORIDE
     Dosage: UNK
     Route: 041
     Dates: start: 19960730, end: 19960809
  37. HUMAN ACTRAPID [Suspect]
     Active Substance: INSULIN HUMAN
     Dosage: UNK
     Route: 058
     Dates: start: 19960816
  38. CIPROBAY [Suspect]
     Active Substance: CIPROFLOXACIN
     Dosage: UNK
     Route: 041
     Dates: start: 19960817, end: 19960817
  39. ALLOPURINOL. [Suspect]
     Active Substance: ALLOPURINOL
     Dosage: UNK
     Route: 048
     Dates: start: 19960729, end: 19960812
  40. MERONEM [Suspect]
     Active Substance: MEROPENEM
     Dosage: 5 G, UNK
     Route: 041
     Dates: start: 19960816
  41. METRONIDAZOLE. [Suspect]
     Active Substance: METRONIDAZOLE
     Dosage: UNK
     Route: 041
     Dates: start: 19960805, end: 19960809
  42. PASSPERTIN [Suspect]
     Active Substance: METOCLOPRAMIDE HYDROCHLORIDE
     Dosage: UNK
     Route: 041
     Dates: start: 19960804
  43. SUPRARENIN [Suspect]
     Active Substance: EPINEPHRINE
     Dosage: UNK
     Route: 041
     Dates: start: 19960817

REACTIONS (14)
  - Acquired epidermolysis bullosa [Fatal]
  - Circulatory collapse [Fatal]
  - Stevens-Johnson syndrome [Fatal]
  - Fungal infection [None]
  - Pain [None]
  - Rash [Fatal]
  - Lip erosion [Fatal]
  - Blister [Fatal]
  - Hyperglycaemia [None]
  - Shock [Fatal]
  - Toxic epidermal necrolysis [Fatal]
  - Pyrexia [None]
  - Pruritus [None]
  - Hypertension [None]

NARRATIVE: CASE EVENT DATE: 19960804
